FAERS Safety Report 24254177 (Version 2)
Quarter: 2025Q3

REPORT INFORMATION
  Report Type: Spontaneous
  Country: GB (occurrence: GB)
  Receive Date: 20240827
  Receipt Date: 20250827
  Transmission Date: 20251020
  Serious: Yes (Death, Hospitalization, Other)
  Sender: ADVANZ PHARMA
  Company Number: GB-MLMSERVICE-20240814-PI162489-00097-1

PATIENT

DRUGS (5)
  1. PREDNISOLONE [Suspect]
     Active Substance: PREDNISOLONE
     Indication: Aplasia pure red cell
  2. CYCLOSPORINE [Suspect]
     Active Substance: CYCLOSPORINE
     Indication: Crohn^s disease
  3. CYCLOSPORINE [Suspect]
     Active Substance: CYCLOSPORINE
     Indication: Aplasia pure red cell
  4. ROXADUSTAT [Concomitant]
     Active Substance: ROXADUSTAT
     Indication: Aplasia pure red cell
  5. IRON [Concomitant]
     Active Substance: IRON
     Route: 042

REACTIONS (3)
  - Cardiac arrest [Fatal]
  - Pneumococcal sepsis [Fatal]
  - Drug effective for unapproved indication [Unknown]
